FAERS Safety Report 5785336-4 (Version None)
Quarter: 2008Q2

REPORT INFORMATION
  Report Type: 
  Country: None (occurrence: None)
  Receive Date: 20080624
  Receipt Date: 20080617
  Transmission Date: 20081010
  Serious: Yes (Other)
  Sender: FDA-Public Use
  Company Number: JP-MERCK-0805USA04811

PATIENT
  Age: 45 Year
  Sex: Male

DRUGS (2)
  1. HYZAAR [Suspect]
     Indication: HYPERTENSION
     Route: 048
     Dates: start: 20080409, end: 20080522
  2. EPINASTINE HYDROCHLORIDE [Concomitant]
     Indication: RHINITIS ALLERGIC
     Route: 048
     Dates: start: 20080409

REACTIONS (1)
  - RHABDOMYOLYSIS [None]
